FAERS Safety Report 5956303-2 (Version None)
Quarter: 2008Q4

REPORT INFORMATION
  Report Type: 
  Country: None (occurrence: None)
  Receive Date: 20081118
  Receipt Date: 20081110
  Transmission Date: 20090506
  Serious: Yes (Hospitalization)
  Sender: FDA-Public Use
  Company Number: US-WYE-H06801908

PATIENT
  Sex: Male
  Weight: 92.62 kg

DRUGS (11)
  1. PRISTIQ [Suspect]
     Indication: DEPRESSION
     Route: 048
     Dates: start: 20081001
  2. PRISTIQ [Suspect]
     Route: 048
  3. PRISTIQ [Suspect]
     Route: 048
     Dates: end: 20081103
  4. METFORMIN HCL [Concomitant]
     Indication: DIABETES MELLITUS
  5. GABAPENTIN [Concomitant]
     Indication: NEUROPATHY PERIPHERAL
  6. SIMVASTATIN [Concomitant]
     Indication: BLOOD CHOLESTEROL INCREASED
  7. TRICOR [Concomitant]
  8. XANAX [Concomitant]
     Indication: NERVOUSNESS
     Dosage: 1 MG PRN
  9. LISINOPRIL [Concomitant]
     Indication: HYPERTENSION
  10. ACETYLSALICYLIC ACID SRT [Concomitant]
  11. PLAVIX [Concomitant]

REACTIONS (11)
  - AGGRESSION [None]
  - CONDITION AGGRAVATED [None]
  - DECREASED APPETITE [None]
  - DIABETES MELLITUS [None]
  - DRUG INEFFECTIVE [None]
  - DYSARTHRIA [None]
  - HEART RATE INCREASED [None]
  - HYPERTENSION [None]
  - SOMNOLENCE [None]
  - UNEVALUABLE EVENT [None]
  - UNRESPONSIVE TO STIMULI [None]
